FAERS Safety Report 5250368-1 (Version None)
Quarter: 2007Q1

REPORT INFORMATION
  Report Type: 
  Country: None (occurrence: None)
  Receive Date: 20070228
  Receipt Date: 20060609
  Transmission Date: 20070707
  Serious: No
  Sender: FDA-Public Use
  Company Number: US-GLAXOSMITHKLINE-A0600328A

PATIENT
  Age: 52 Year
  Sex: Female
  Weight: 61.4 kg

DRUGS (3)
  1. LAMICTAL [Suspect]
     Indication: DRUG USE FOR UNKNOWN INDICATION
     Dosage: 50MG PER DAY
     Route: 048
     Dates: start: 20060307, end: 20060403
  2. DEPAKOTE ER [Concomitant]
     Dosage: 1000MG PER DAY
     Route: 048
     Dates: start: 20060307
  3. CYMBALTA [Concomitant]
     Dosage: 30MG PER DAY
     Route: 048
     Dates: start: 20060307

REACTIONS (2)
  - PYREXIA [None]
  - RASH [None]
